FAERS Safety Report 16354232 (Version 3)
Quarter: 2019Q3

REPORT INFORMATION
  Report Type: Spontaneous
  Country: DE (occurrence: GB)
  Receive Date: 20190524
  Receipt Date: 20190708
  Transmission Date: 20191004
  Serious: Yes (Death, Hospitalization)
  Sender: FDA-Public Use
  Company Number: GB-ACTELION-A-NJ2019-190816

PATIENT
  Sex: Male

DRUGS (3)
  1. VOLIBRIS [Concomitant]
     Active Substance: AMBRISENTAN
  2. SILDENAFIL. [Concomitant]
     Active Substance: SILDENAFIL
  3. VENTAVIS [Suspect]
     Active Substance: ILOPROST
     Indication: PULMONARY HYPERTENSION
     Dosage: 2.5 MCG/ML, 6ID
     Route: 055
     Dates: start: 20120302, end: 20190613

REACTIONS (2)
  - Hospitalisation [Unknown]
  - Death [Fatal]
